FAERS Safety Report 19658443 (Version 1)
Quarter: 2021Q3

REPORT INFORMATION
  Report Type: Report from Study
  Country: US (occurrence: US)
  Receive Date: 20210805
  Receipt Date: 20210805
  Transmission Date: 20211014
  Serious: Yes (Life-Threatening, Other)
  Sender: FDA-Public Use
  Company Number: US-AUROBINDO-AUR-APL-2021-033850

PATIENT
  Age: 41 Year
  Sex: Female
  Weight: 80.7 kg

DRUGS (1)
  1. BELINOSTAT [Suspect]
     Active Substance: BELINOSTAT
     Indication: MYELODYSPLASTIC SYNDROME
     Dosage: UNK
     Route: 065

REACTIONS (6)
  - Gingival pain [Unknown]
  - Epistaxis [Unknown]
  - Anaemia [Unknown]
  - Platelet count decreased [Unknown]
  - Cough [Unknown]
  - Nausea [Unknown]
